FAERS Safety Report 9733470 (Version 3)
Quarter: 2014Q1

REPORT INFORMATION
  Report Type: Report from Study
  Country: JP (occurrence: JP)
  Receive Date: 20131205
  Receipt Date: 20140214
  Transmission Date: 20141002
  Serious: Yes (Life-Threatening, Hospitalization)
  Sender: FDA-Public Use
  Company Number: JP-SA-2013SA124325

PATIENT
  Age: 22 Year
  Sex: Male

DRUGS (11)
  1. EVOLTRA [Suspect]
     Indication: ACUTE LYMPHOCYTIC LEUKAEMIA RECURRENT
     Route: 042
     Dates: start: 20130827, end: 20130831
  2. ETOPOSIDE [Suspect]
     Indication: ACUTE LYMPHOCYTIC LEUKAEMIA RECURRENT
     Dosage: 245 MG/ BODY/ DAY DOSE:245 UNIT(S)
     Route: 042
     Dates: start: 20130827, end: 20130831
  3. ENDOXAN [Suspect]
     Indication: ACUTE LYMPHOCYTIC LEUKAEMIA RECURRENT
     Dosage: DOSE:655 UNIT(S)
     Route: 042
     Dates: start: 20130827, end: 20130831
  4. DECADRON PHOSPHATE [Suspect]
     Indication: ACUTE LYMPHOCYTIC LEUKAEMIA RECURRENT
     Dosage: DOSE:6.6 UNIT(S)
     Route: 042
     Dates: start: 20130827, end: 20130831
  5. METHOTREXATE [Suspect]
     Indication: ACUTE LYMPHOCYTIC LEUKAEMIA RECURRENT
     Dosage: DOSE:15 UNIT(S)
     Route: 042
     Dates: start: 20130826, end: 20130826
  6. METHOTREXATE [Suspect]
     Indication: ACUTE LYMPHOCYTIC LEUKAEMIA RECURRENT
     Dosage: DOSE:15 UNIT(S)
     Route: 042
     Dates: start: 20130829, end: 20130829
  7. SOLU-CORTEF [Suspect]
     Indication: PRODUCT USED FOR UNKNOWN INDICATION
     Route: 065
  8. CYLOCIDE [Concomitant]
     Indication: ACUTE LYMPHOCYTIC LEUKAEMIA RECURRENT
     Dosage: 40 MG/ BODY/DAY DOSE:40 UNIT(S)
     Route: 042
     Dates: start: 20130829, end: 20130829
  9. CYLOCIDE [Concomitant]
     Indication: ACUTE LYMPHOCYTIC LEUKAEMIA RECURRENT
     Dosage: 40 MG/ BODY/DAY DOSE:40 UNIT(S)
     Route: 042
     Dates: start: 20130826, end: 20130826
  10. PREDONINE [Concomitant]
     Indication: ACUTE LYMPHOCYTIC LEUKAEMIA RECURRENT
     Dosage: 10 MG/ BODY /DAY DOSE:10 UNIT(S)
     Route: 042
     Dates: start: 20130829, end: 20130829
  11. PREDONINE [Concomitant]
     Indication: ACUTE LYMPHOCYTIC LEUKAEMIA RECURRENT
     Dosage: 10 MG/ BODY /DAY DOSE:10 UNIT(S)
     Route: 042
     Dates: start: 20130826, end: 20130826

REACTIONS (6)
  - Pancytopenia [Recovered/Resolved]
  - Infection [Recovering/Resolving]
  - Blood creatine phosphokinase increased [Recovered/Resolved]
  - Hepatic function abnormal [Recovering/Resolving]
  - Hypertension [Recovered/Resolved]
  - Diarrhoea [Recovering/Resolving]
